FAERS Safety Report 8418169-0 (Version None)
Quarter: 2012Q2

REPORT INFORMATION
  Report Type: 
  Country: None (occurrence: None)
  Receive Date: 20120607
  Receipt Date: 20120604
  Transmission Date: 20120825
  Serious: No
  Sender: FDA-Public Use
  Company Number: US-PFIZER INC-2012134528

PATIENT
  Sex: Female
  Weight: 62.585 kg

DRUGS (4)
  1. TRAMADOL HCL [Suspect]
     Indication: ARTHRITIS
     Dosage: 50 MG (EVERY 6 HOURS), 4X/DAY
     Dates: start: 20120101
  2. NEXIUM [Concomitant]
     Indication: CROHN'S DISEASE
     Dosage: 20 MG, 2X/DAY
  3. FLECTOR [Suspect]
     Indication: ARTHRALGIA
     Dosage: UNK, 2X/DAY
     Route: 062
     Dates: start: 20110301
  4. TRAMADOL HCL [Suspect]
     Indication: PIRIFORMIS SYNDROME

REACTIONS (2)
  - HAEMATOCRIT DECREASED [None]
  - HAEMOGLOBIN DECREASED [None]
